FAERS Safety Report 13359110 (Version 1)
Quarter: 2017Q1

REPORT INFORMATION
  Report Type: Spontaneous
  Country: US (occurrence: US)
  Receive Date: 20170322
  Receipt Date: 20170322
  Transmission Date: 20170429
  Serious: Yes (Hospitalization, Other)
  Sender: FDA-Public Use
  Company Number: US-009507513-1703USA007561

PATIENT
  Sex: Female

DRUGS (1)
  1. KEYTRUDA [Suspect]
     Active Substance: PEMBROLIZUMAB
     Indication: BRAIN NEOPLASM
     Dosage: UNK
     Route: 042
     Dates: start: 2016

REACTIONS (4)
  - Pelvic neoplasm [Unknown]
  - Bone neoplasm [Unknown]
  - Pelvic fracture [Unknown]
  - Product use issue [Unknown]

NARRATIVE: CASE EVENT DATE: 2016
